FAERS Safety Report 6242159-X (Version None)
Quarter: 2009Q2

REPORT INFORMATION
  Report Type: 
  Country: None (occurrence: None)
  Receive Date: 20090622
  Receipt Date: 20090622
  Transmission Date: 20091009
  Serious: Yes (Life-Threatening)
  Sender: FDA-Public Use
  Company Number: None

PATIENT
  Age: 61 Year
  Sex: Male
  Weight: 76.2043 kg

DRUGS (1)
  1. DILANTIN [Suspect]
     Indication: BRAIN OPERATION
     Dosage: 200 MG TWICE DAILY PO
     Route: 048
     Dates: start: 20090415, end: 20090615

REACTIONS (10)
  - ABASIA [None]
  - AGGRESSION [None]
  - ANTICONVULSANT DRUG LEVEL INCREASED [None]
  - BELLIGERENCE [None]
  - COMA [None]
  - EATING DISORDER [None]
  - IMPAIRED DRIVING ABILITY [None]
  - INCORRECT DOSE ADMINISTERED [None]
  - MEDICATION ERROR [None]
  - SUICIDAL IDEATION [None]
